FAERS Safety Report 4945500-0 (Version None)
Quarter: 2006Q1

REPORT INFORMATION
  Report Type: 
  Country: None (occurrence: None)
  Receive Date: 20060117
  Receipt Date: 20050920
  Transmission Date: 20060701
  Serious: Yes (Hospitalization)
  Sender: FDA-Public Use
  Company Number: A03200502975

PATIENT
  Age: 77 Year
  Sex: Female
  Weight: 108.84 kg

DRUGS (5)
  1. PLAVIX [Suspect]
     Dosage: 75 MG QD ORAL
     Route: 048
     Dates: start: 20020101, end: 20050801
  2. PLAVIX [Suspect]
     Dosage: 75 MG QOD - ORAL
     Route: 048
     Dates: start: 20030101
  3. MAGNESIUM [Concomitant]
  4. METFORMIN [Concomitant]
  5. GLYBURIDE [Concomitant]

REACTIONS (7)
  - BLOOD GLUCOSE DECREASED [None]
  - BLOOD MAGNESIUM DECREASED [None]
  - DRUG INEFFECTIVE [None]
  - HYPERHIDROSIS [None]
  - MIGRAINE [None]
  - MYOCARDIAL INFARCTION [None]
  - SINUS HEADACHE [None]
